FAERS Safety Report 7398997-3 (Version None)
Quarter: 2011Q2

REPORT INFORMATION
  Report Type: 
  Country: None (occurrence: None)
  Receive Date: 20110407
  Receipt Date: 20110401
  Transmission Date: 20111010
  Serious: Yes (Hospitalization, Other)
  Sender: FDA-Public Use
  Company Number: US-ELI_LILLY_AND_COMPANY-US201104000916

PATIENT
  Sex: Female

DRUGS (2)
  1. LANTUS [Concomitant]
     Dosage: UNK
  2. HUMALOG [Suspect]
     Indication: DIABETES MELLITUS
     Dosage: 20 U, OTHER
     Dates: start: 19960101

REACTIONS (5)
  - CEREBROVASCULAR ACCIDENT [None]
  - HIATUS HERNIA [None]
  - MOTOR DYSFUNCTION [None]
  - GLAUCOMA [None]
  - VISUAL IMPAIRMENT [None]
